FAERS Safety Report 13459743 (Version 1)
Quarter: 2017Q2

REPORT INFORMATION
  Report Type: Spontaneous
  Country: BR (occurrence: BR)
  Receive Date: 20170420
  Receipt Date: 20170420
  Transmission Date: 20170830
  Serious: Yes (Other)
  Sender: FDA-Public Use
  Company Number: BR-TORRENT-00003958

PATIENT
  Age: 61 Year
  Sex: Female
  Weight: 101 kg

DRUGS (9)
  1. ROSUCOR [Concomitant]
     Active Substance: ROSUVASTATIN CALCIUM
  2. DIAZEPAM. [Concomitant]
     Active Substance: DIAZEPAM
  3. VENLIFT OD [Suspect]
     Active Substance: VENLAFAXINE HYDROCHLORIDE
  4. SYNTHROID [Concomitant]
     Active Substance: LEVOTHYROXINE SODIUM
  5. LOSARTAN POTASSIUM. [Concomitant]
     Active Substance: LOSARTAN POTASSIUM
  6. ATENOLOL. [Concomitant]
     Active Substance: ATENOLOL
  7. GLIFAGE XR [Concomitant]
     Active Substance: METFORMIN HYDROCHLORIDE
  8. LEVOZINE [Concomitant]
  9. CARBAMAZEPINE. [Concomitant]
     Active Substance: CARBAMAZEPINE

REACTIONS (11)
  - Diabetes mellitus [Unknown]
  - Thyroid mass [Not Recovered/Not Resolved]
  - Dry mouth [Not Recovered/Not Resolved]
  - Nervousness [Unknown]
  - Insomnia [Unknown]
  - Overdose [Unknown]
  - Hypertension [Unknown]
  - Intentional underdose [Recovered/Resolved]
  - Dysgeusia [Not Recovered/Not Resolved]
  - Blood cholesterol increased [Unknown]
  - Drug ineffective [Not Recovered/Not Resolved]

NARRATIVE: CASE EVENT DATE: 2007
